FAERS Safety Report 7706940 (Version 5)
Quarter: 2013Q4

REPORT INFORMATION
  Report Type: Spontaneous
  Country: SE (occurrence: SE)
  Receive Date: 20101214
  Receipt Date: 20131017
  Transmission Date: 20140711
  Serious: No
  Sender: FDA-Public Use
  Company Number: SE-JNJFOC-20101202347

PATIENT
  Age: 43 Year
  Sex: Male

DRUGS (2)
  1. DUROGESIC [Suspect]
     Indication: PROCEDURAL PAIN
     Route: 062
     Dates: start: 2005
  2. DUROGESIC [Suspect]
     Indication: GASTROINTESTINAL PAIN
     Route: 062
     Dates: start: 2005

REACTIONS (6)
  - Hyperhidrosis [Unknown]
  - Dermatitis contact [Unknown]
  - Pain [Unknown]
  - Inappropriate schedule of drug administration [Unknown]
  - Product quality issue [Unknown]
  - Drug ineffective [Unknown]
